FAERS Safety Report 25645941 (Version 1)
Quarter: 2025Q3

REPORT INFORMATION
  Report Type: Spontaneous
  Country: US (occurrence: None)
  Receive Date: 20250804
  Receipt Date: 20250804
  Transmission Date: 20251020
  Serious: Yes (Life-Threatening)
  Sender: FDA-CTU
  Company Number: None

PATIENT
  Age: 33 Year
  Sex: Male
  Weight: 94.5 kg

DRUGS (12)
  1. XOLAIR [Suspect]
     Active Substance: OMALIZUMAB
     Route: 058
     Dates: start: 20250718, end: 20250718
  2. PREDNISONE [Suspect]
     Active Substance: PREDNISONE
  3. DIPHENHYDRAMINE [Suspect]
     Active Substance: DIPHENHYDRAMINE
  4. FAMOTIDINE [Suspect]
     Active Substance: FAMOTIDINE
  5. 12.5mg metoprolol daily [Concomitant]
  6. 150mg bupropion xl daily [Concomitant]
  7. Levocetirizine 5mg 2x/daily [Concomitant]
  8. Famotidine 20mg daily [Concomitant]
  9. Vitamin D3 2000 IU daily [Concomitant]
  10. Vitamin B12 1000 mcg daily [Concomitant]
  11. Magnesium glycinate 120mg 2x daily [Concomitant]
  12. Melatonin 1mg daily [Concomitant]

REACTIONS (13)
  - Chest discomfort [None]
  - Pulmonary pain [None]
  - Urticaria [None]
  - Akathisia [None]
  - Pruritus [None]
  - Fatigue [None]
  - Malaise [None]
  - Pain [None]
  - Nausea [None]
  - Decreased appetite [None]
  - Neuralgia [None]
  - Cough [None]
  - Sinus congestion [None]

NARRATIVE: CASE EVENT DATE: 20250718
